FAERS Safety Report 7617104-2 (Version None)
Quarter: 2011Q3

REPORT INFORMATION
  Report Type: 
  Country: None (occurrence: None)
  Receive Date: 20110718
  Receipt Date: 20110705
  Transmission Date: 20111222
  Serious: Yes (Other)
  Sender: FDA-Public Use
  Company Number: DE-BAYER-2011-025759

PATIENT
  Sex: Female
  Weight: 76 kg

DRUGS (3)
  1. INTERFERON BETA-1B [Suspect]
     Indication: MULTIPLE SCLEROSIS
     Dosage: UNK
     Route: 058
     Dates: start: 20101101
  2. CARBIMAZOL [Concomitant]
  3. IBUPROFEN [Concomitant]

REACTIONS (5)
  - DEPRESSION [None]
  - SKIN REACTION [None]
  - PARAESTHESIA [None]
  - MUSCLE SPASTICITY [None]
  - RESTLESSNESS [None]
